FAERS Safety Report 11240130 (Version 1)
Quarter: 2015Q3

REPORT INFORMATION
  Report Type: Spontaneous
  Country: ES (occurrence: ES)
  Receive Date: 20150706
  Receipt Date: 20150706
  Transmission Date: 20151125
  Serious: Yes (Hospitalization)
  Sender: FDA-Public Use
  Company Number: ES-CLINIGEN GROUP PLC/ CLINIGEN HEALTHCARE LTD-ES-CLGN-15-00023

PATIENT
  Age: 2 Year
  Sex: Male

DRUGS (1)
  1. FOSCARNET?SODIUM [Suspect]
     Active Substance: FOSCARNET SODIUM
     Indication: CYTOMEGALOVIRUS INFECTION
     Route: 065

REACTIONS (6)
  - Product use issue [Recovered/Resolved]
  - Hypomagnesaemia [Recovered/Resolved]
  - Pulmonary oedema [None]
  - Device related infection [Unknown]
  - Hypocalcaemia [Recovered/Resolved]
  - Staphylococcal infection [None]
